FAERS Safety Report 12135327 (Version 1)
Quarter: 2016Q1

REPORT INFORMATION
  Report Type: Report from Study
  Country: MX (occurrence: MX)
  Receive Date: 20160302
  Receipt Date: 20160302
  Transmission Date: 20160526
  Serious: No
  Sender: FDA-Public Use
  Company Number: MX-UCBSA-2016007325

PATIENT
  Age: 4 Year
  Sex: Male
  Weight: 18 kg

DRUGS (8)
  1. CERTOLIZUMAB PEGOL JIA [Suspect]
     Active Substance: CERTOLIZUMAB PEGOL
     Indication: JUVENILE IDIOPATHIC ARTHRITIS
     Dosage: 50 MG, MONTHLY (QM)
     Route: 058
     Dates: start: 20150521, end: 20150727
  2. CLORFENAMINA [Concomitant]
     Indication: VARICELLA
     Dosage: 1.8 MG, EVERY 8 HOURS
     Route: 048
     Dates: start: 20150727, end: 20150803
  3. NAPROXEN. [Concomitant]
     Active Substance: NAPROXEN
     Indication: JUVENILE IDIOPATHIC ARTHRITIS
     Dosage: 150 MG, AS NEEDED (PRN)
     Route: 048
     Dates: start: 20150119
  4. ACICLOVIR [Concomitant]
     Active Substance: ACYCLOVIR
     Indication: VARICELLA
     Dosage: 170 MG, EVERY 5 HOURS
     Route: 048
     Dates: start: 20150727, end: 20150803
  5. FOLIC ACID. [Concomitant]
     Active Substance: FOLIC ACID
     Indication: JUVENILE IDIOPATHIC ARTHRITIS
     Dosage: 5 MG, EV 3 DAYS
     Route: 048
     Dates: start: 20150119
  6. CERTOLIZUMAB PEGOL JIA [Suspect]
     Active Substance: CERTOLIZUMAB PEGOL
     Dosage: 50 MG, MONTHLY (QM)
     Route: 058
     Dates: start: 20150804
  7. METHOTREXATE [Concomitant]
     Active Substance: METHOTREXATE
     Indication: JUVENILE IDIOPATHIC ARTHRITIS
     Dosage: 10 MG, QS
     Route: 048
     Dates: start: 20150119
  8. PRURIX [Concomitant]
     Indication: VARICELLA
     Dosage: UNK, EVERY 8 HOURS
     Route: 003
     Dates: start: 20150727, end: 20150803

REACTIONS (1)
  - Varicella [Recovered/Resolved]

NARRATIVE: CASE EVENT DATE: 20150727
